FAERS Safety Report 12464454 (Version 3)
Quarter: 2016Q3

REPORT INFORMATION
  Report Type: Spontaneous
  Country: US (occurrence: US)
  Receive Date: 20160614
  Receipt Date: 20160819
  Transmission Date: 20161109
  Serious: Yes (Hospitalization, Other)
  Sender: FDA-Public Use
  Company Number: US-PFIZER INC-2016297351

PATIENT
  Age: 47 Year
  Sex: Female

DRUGS (5)
  1. ESCITALOPRAM [Concomitant]
     Active Substance: ESCITALOPRAM OXALATE
     Dosage: UNK
  2. KLONOPIN [Concomitant]
     Active Substance: CLONAZEPAM
     Dosage: UNK
  3. LITHIUM. [Interacting]
     Active Substance: LITHIUM
     Dosage: UNK
  4. ARIPIPRAZOLE. [Concomitant]
     Active Substance: ARIPIPRAZOLE
     Dosage: UNK
  5. DOXYCYCLINE HYCLATE. [Suspect]
     Active Substance: DOXYCYCLINE HYCLATE
     Indication: PNEUMONIA
     Dosage: UNK

REACTIONS (8)
  - Mental status changes [Recovered/Resolved]
  - Resting tremor [Unknown]
  - Polydipsia [Unknown]
  - Nephrogenic diabetes insipidus [Recovering/Resolving]
  - Aphasia [Unknown]
  - Drug interaction [Unknown]
  - Hypernatraemia [Unknown]
  - Toxicity to various agents [Unknown]
